FAERS Safety Report 4387729-9 (Version None)
Quarter: 2004Q2

REPORT INFORMATION
  Report Type: 
  Country: None (occurrence: None)
  Receive Date: 20040630
  Receipt Date: 20031016
  Transmission Date: 20050107
  Serious: Yes (Hospitalization, Disabling, Other)
  Sender: FDA-Public Use
  Company Number: US-MERCK-0310USA01958

PATIENT
  Age: 51 Year
  Sex: Male
  Weight: 105 kg

DRUGS (34)
  1. [THERAPY UNSPECIFIED] [Concomitant]
     Route: 065
     Dates: start: 19740101
  2. TYLENOL [Concomitant]
     Indication: PAIN
     Route: 065
     Dates: start: 19680101
  3. ACYCLOVIR [Concomitant]
     Indication: VARICELLA
     Route: 042
     Dates: start: 20010201, end: 20010601
  4. PROVENTIL [Concomitant]
     Indication: ASTHMA
     Route: 048
  5. ALLOPURINOL [Concomitant]
     Indication: PROPHYLAXIS
     Route: 065
  6. ELAVIL [Concomitant]
     Route: 048
  7. FIORINAL W/CODEINE [Concomitant]
     Route: 065
  8. AZATHIOPRINE [Concomitant]
     Route: 065
  9. TEGRETOL [Concomitant]
     Indication: CONVULSION
     Route: 065
     Dates: start: 19700101
  10. TEGRETOL [Concomitant]
     Route: 065
     Dates: start: 19700101
  11. TEGRETOL [Concomitant]
     Route: 065
     Dates: start: 19700101
  12. ZYRTEC [Concomitant]
     Indication: HYPERSENSITIVITY
     Route: 065
  13. HYDROXYCHLOROQUINE SULFATE [Concomitant]
     Route: 065
  14. ADVIL [Concomitant]
     Route: 065
     Dates: start: 19740101
  15. REMICADE [Suspect]
     Indication: RHEUMATOID ARTHRITIS
     Route: 042
     Dates: start: 20000424, end: 20001222
  16. REMICADE [Suspect]
     Route: 042
     Dates: start: 20010215
  17. PURINETHOL [Concomitant]
     Route: 065
  18. METHOTREXATE [Suspect]
     Indication: RHEUMATOID ARTHRITIS
     Route: 065
     Dates: start: 20000313
  19. METHOTREXATE [Suspect]
     Route: 065
     Dates: start: 20020319, end: 20020901
  20. PRILOSEC [Concomitant]
     Indication: GASTROOESOPHAGEAL REFLUX DISEASE
     Route: 065
  21. K-DUR 10 [Concomitant]
     Indication: HYPOKALAEMIA
     Route: 065
  22. PREDNISONE [Concomitant]
     Route: 065
  23. VIOXX [Suspect]
     Indication: RHEUMATOID ARTHRITIS
     Route: 048
     Dates: start: 20000114, end: 20000101
  24. VIOXX [Suspect]
     Route: 048
     Dates: start: 20000101, end: 20000901
  25. VIOXX [Suspect]
     Route: 048
     Dates: end: 20020301
  26. VIOXX [Suspect]
     Route: 065
     Dates: start: 20010312
  27. VIOXX [Suspect]
     Route: 065
     Dates: start: 20000901, end: 20001201
  28. VIOXX [Suspect]
     Route: 048
     Dates: start: 20021113, end: 20021115
  29. VIOXX [Suspect]
     Route: 048
     Dates: start: 20021116, end: 20021129
  30. VIOXX [Suspect]
     Route: 048
     Dates: start: 20030610, end: 20030611
  31. VIOXX [Suspect]
     Route: 048
     Dates: start: 20030612, end: 20030820
  32. VIOXX [Suspect]
     Route: 048
     Dates: start: 20010701, end: 20020128
  33. VIOXX [Suspect]
     Route: 048
     Dates: start: 20020129
  34. TRIAMTERENE [Concomitant]
     Indication: HYPERTENSION
     Route: 065
     Dates: start: 19940101

REACTIONS (65)
  - ABDOMINAL DISCOMFORT [None]
  - ABDOMINAL PAIN UPPER [None]
  - ARTHRALGIA [None]
  - ATHEROSCLEROSIS [None]
  - ATRIAL FIBRILLATION [None]
  - BASAL CELL CARCINOMA [None]
  - BLOOD CREATININE INCREASED [None]
  - BONE MARROW DEPRESSION [None]
  - BREAST CYST [None]
  - BRONCHITIS [None]
  - CARDIOLIPIN ANTIBODY POSITIVE [None]
  - CEREBROVASCULAR ACCIDENT [None]
  - COLONIC POLYP [None]
  - CORONARY ARTERY DISEASE [None]
  - DEPRESSION [None]
  - DISEASE RECURRENCE [None]
  - DYSPEPSIA [None]
  - ECCHYMOSIS [None]
  - EPISCLERITIS [None]
  - FAECES DISCOLOURED [None]
  - FALL [None]
  - FELTY'S SYNDROME [None]
  - FLUID OVERLOAD [None]
  - GASTROOESOPHAGEAL REFLUX DISEASE [None]
  - HAEMORRHOIDAL HAEMORRHAGE [None]
  - HERPES ZOSTER [None]
  - HERPES ZOSTER OPHTHALMIC [None]
  - HIATUS HERNIA [None]
  - HYPERTENSION [None]
  - HYPERTONIC BLADDER [None]
  - IMMUNOGLOBULINS DECREASED [None]
  - IMMUNOSUPPRESSION [None]
  - INFLUENZA LIKE ILLNESS [None]
  - INSOMNIA [None]
  - KERATITIS HERPETIC [None]
  - LARYNGITIS VIRAL [None]
  - LEUKOPENIA [None]
  - LYMPHOMA [None]
  - MENTAL IMPAIRMENT [None]
  - MIGRAINE [None]
  - MITRAL VALVE INCOMPETENCE [None]
  - MOUTH INJURY [None]
  - MUSCULOSKELETAL STIFFNESS [None]
  - NAUSEA [None]
  - NOCTURIA [None]
  - ORTHOSTATIC HYPOTENSION [None]
  - OVERDOSE [None]
  - PAIN [None]
  - PAIN EXACERBATED [None]
  - PANCYTOPENIA [None]
  - PLATELET DISORDER [None]
  - PROSTATITIS [None]
  - PYREXIA [None]
  - RASH [None]
  - RENAL DISORDER [None]
  - RENAL PAIN [None]
  - RHEUMATOID ARTHRITIS [None]
  - RIB FRACTURE [None]
  - SINUSITIS [None]
  - THERAPY NON-RESPONDER [None]
  - THROMBOCYTOPENIA [None]
  - TRANSIENT ISCHAEMIC ATTACK [None]
  - TRIGGER FINGER [None]
  - VIRAL PHARYNGITIS [None]
  - WEIGHT DECREASED [None]
